FAERS Safety Report 5640972-0 (Version None)
Quarter: 2008Q1

REPORT INFORMATION
  Report Type: 
  Country: None (occurrence: None)
  Receive Date: 20080227
  Receipt Date: 20080212
  Transmission Date: 20080703
  Serious: Yes (Death)
  Sender: FDA-Public Use
  Company Number: NL-TEVA-167580ISR

PATIENT
  Sex: Male

DRUGS (4)
  1. CISPLATIN [Suspect]
     Indication: METASTASES TO LUNG
     Dates: start: 20071217
  2. CISPLATIN [Suspect]
     Indication: METASTASES TO LYMPH NODES
  3. BLEOMYCIN [Concomitant]
     Dates: start: 20071218, end: 20071218
  4. ETOPOSIDE [Concomitant]
     Dates: start: 20071217, end: 20071221

REACTIONS (2)
  - CEREBRAL INFARCTION [None]
  - DEATH [None]
